FAERS Safety Report 5088106-8 (Version None)
Quarter: 2006Q3

REPORT INFORMATION
  Report Type: 
  Country: None (occurrence: None)
  Receive Date: 20060821
  Receipt Date: 20060808
  Transmission Date: 20061208
  Serious: Yes (Hospitalization, Other)
  Sender: FDA-Public Use
  Company Number: 2006096872

PATIENT
  Sex: Female

DRUGS (10)
  1. XANAX [Suspect]
     Indication: ANXIETY
     Dosage: 4 MG (3 IN 1 D)
  2. CHANTIX [Suspect]
     Indication: SMOKING CESSATION THERAPY
     Dosage: 0.5 MG (0.5 MG, 1 IN 1 D)
     Dates: start: 20060807
  3. MONTELUKAST (MONTELUKAST) [Concomitant]
  4. ALL OTHER THERAPEUTIC PRODUCTS (ALL OTHER THERAPEUTIC PRODUCTS) [Concomitant]
  5. PAXIL [Concomitant]
  6. ANTI-DIABETICS (ANTI-DIABETICS) [Concomitant]
  7. SEREVENT [Concomitant]
  8. PULMICORT [Concomitant]
  9. GLUCOPHAGE [Concomitant]
  10. ACTOS [Concomitant]

REACTIONS (4)
  - ANXIETY [None]
  - ASTHMA [None]
  - NERVOUSNESS [None]
  - SLEEP APNOEA SYNDROME [None]
